FAERS Safety Report 12918711 (Version 2)
Quarter: 2017Q4

REPORT INFORMATION
  Report Type: Report from Study
  Country: JP (occurrence: JP)
  Receive Date: 20161107
  Receipt Date: 20171127
  Transmission Date: 20180320
  Serious: Yes (Hospitalization)
  Sender: FDA-Public Use
  Company Number: JP-SA-2016SA200372

PATIENT
  Age: 64 Year
  Sex: Female

DRUGS (8)
  1. DARBEPOETIN ALFA [Suspect]
     Active Substance: DARBEPOETIN ALFA
     Route: 042
     Dates: start: 20150615, end: 20150810
  2. DARBEPOETIN ALFA [Suspect]
     Active Substance: DARBEPOETIN ALFA
     Route: 042
     Dates: start: 20160606, end: 20160815
  3. ROCALTROL [Suspect]
     Active Substance: CALCITRIOL
     Route: 042
     Dates: start: 20161111
  4. PHOSBLOCK [Suspect]
     Active Substance: FERRIC HYDROXIDE
     Route: 048
     Dates: start: 20150211
  5. REGPARA [Suspect]
     Active Substance: CINACALCET HYDROCHLORIDE
     Route: 048
     Dates: start: 20160113, end: 20161214
  6. REGPARA [Suspect]
     Active Substance: CINACALCET HYDROCHLORIDE
     Route: 048
     Dates: start: 20161214
  7. DARBEPOETIN ALFA [Suspect]
     Active Substance: DARBEPOETIN ALFA
     Route: 042
     Dates: start: 20160411, end: 20160522
  8. DARBEPOETIN ALFA [Suspect]
     Active Substance: DARBEPOETIN ALFA
     Route: 042
     Dates: start: 20160523, end: 20160606

REACTIONS (3)
  - Urinary tract infection [Recovering/Resolving]
  - Angina pectoris [Recovering/Resolving]
  - Gallbladder disorder [Recovering/Resolving]

NARRATIVE: CASE EVENT DATE: 20150530
